FAERS Safety Report 6859513-5 (Version None)
Quarter: 2010Q3

REPORT INFORMATION
  Report Type: 
  Country: None (occurrence: None)
  Receive Date: 20100719
  Receipt Date: 20080303
  Transmission Date: 20110219
  Serious: Yes (Other)
  Sender: FDA-Public Use
  Company Number: US-PFIZER INC-2008019907

PATIENT
  Sex: Male
  Weight: 79.4 kg

DRUGS (4)
  1. CHANTIX [Suspect]
     Indication: SMOKING CESSATION THERAPY
     Dates: start: 20080219, end: 20080302
  2. ALTACE [Concomitant]
  3. ATENOLOL [Concomitant]
  4. LIPITOR [Concomitant]

REACTIONS (4)
  - ABNORMAL DREAMS [None]
  - AGITATION [None]
  - EYE DISORDER [None]
  - HALLUCINATION [None]
